FAERS Safety Report 5176471-2 (Version None)
Quarter: 2006Q4

REPORT INFORMATION
  Report Type: 
  Country: None (occurrence: None)
  Receive Date: 20061207
  Receipt Date: 20061122
  Transmission Date: 20070319
  Serious: Yes (Hospitalization)
  Sender: FDA-Public Use
  Company Number: A-JP2006-12677

PATIENT
  Age: 54 Year
  Sex: Female
  Weight: 41 kg

DRUGS (10)
  1. TRACLEER [Suspect]
     Indication: PULMONARY HYPERTENSION
     Dosage: 62.5 MG, BID, ORAL
     Route: 048
     Dates: start: 20060410, end: 20060501
  2. TRACLEER [Suspect]
     Indication: PULMONARY HYPERTENSION
     Dosage: 62.5 MG, BID, ORAL
     Route: 048
     Dates: start: 20060524
  3. EPOPROSTENOL SODIUM [Concomitant]
  4. SILDENAFIL CITRATE [Concomitant]
  5. SPIRONOLACTONE [Concomitant]
  6. FUROSEMIDE [Concomitant]
  7. LANSOPRAZOLE [Concomitant]
  8. INDAPAMIDE [Concomitant]
  9. DOMPERIDONE [Concomitant]
  10. OXYGEN [Concomitant]

REACTIONS (4)
  - BACK PAIN [None]
  - MUSCULOSKELETAL PAIN [None]
  - PERICARDITIS [None]
  - SUBILEUS [None]
